FAERS Safety Report 4671097-9 (Version None)
Quarter: 2005Q2

REPORT INFORMATION
  Report Type: 
  Country: None (occurrence: None)
  Receive Date: 20050523
  Receipt Date: 20050429
  Transmission Date: 20051028
  Serious: Yes (Other)
  Sender: FDA-Public Use
  Company Number: 2005075398

PATIENT
  Age: 56 Year
  Sex: Female

DRUGS (1)
  1. MINOXIDIL [Suspect]
     Dates: start: 20050422, end: 20050425

REACTIONS (3)
  - DYSPNOEA [None]
  - HEADACHE [None]
  - VOMITING [None]
